FAERS Safety Report 9408001 (Version 2)
Quarter: 2013Q3

REPORT INFORMATION
  Report Type: Spontaneous
  Country: AU (occurrence: AU)
  Receive Date: 20130718
  Receipt Date: 20130906
  Transmission Date: 20140515
  Serious: Yes (Death)
  Sender: FDA-Public Use
  Company Number: AU-B.I. PHARMACEUTICALS,INC./RIDGEFIELD-2013-AU-00856AU

PATIENT
  Sex: Male

DRUGS (10)
  1. PRADAXA [Suspect]
     Indication: ATRIAL FIBRILLATION
     Dosage: 220 MG
  2. FRUSEMIDE [Concomitant]
     Dates: start: 2011
  3. ATACAND [Concomitant]
  4. DIAZOXIDE [Concomitant]
  5. HYDROCHLORTHIAZIDE [Concomitant]
     Dates: start: 2011
  6. METFORMIN [Concomitant]
  7. BISOPROLOL [Concomitant]
  8. SPIRONOLACTONE [Concomitant]
  9. DIGOXIN [Concomitant]
  10. CANDESARTAN [Concomitant]

REACTIONS (3)
  - Ventricular fibrillation [Fatal]
  - Cardiac failure [Fatal]
  - Renal function test [Unknown]
